FAERS Safety Report 8617753-9 (Version None)
Quarter: 2012Q3

REPORT INFORMATION
  Report Type: 
  Country: None (occurrence: None)
  Receive Date: 20120824
  Receipt Date: 20120817
  Transmission Date: 20120928
  Serious: No
  Sender: FDA-Public Use
  Company Number: US-009507513-1208USA008269

PATIENT

DRUGS (6)
  1. CRESTOR [Concomitant]
     Dosage: 10 MG, QD
  2. LISINOPRIL [Concomitant]
  3. METFORMIN HCL [Concomitant]
     Dosage: 1000 MG, BID
  4. GLIPIZIDE [Concomitant]
     Dosage: 10 MG, UNK
  5. JANUVIA [Suspect]
     Indication: DIABETES MELLITUS
     Dosage: 100 MG, QD
     Route: 048
  6. LASIX [Concomitant]

REACTIONS (1)
  - FATIGUE [None]
